FAERS Safety Report 4451270-5 (Version None)
Quarter: 2004Q3

REPORT INFORMATION
  Report Type: 
  Country: None (occurrence: None)
  Receive Date: 20040913
  Receipt Date: 20040712
  Transmission Date: 20050211
  Serious: No
  Sender: FDA-Public Use
  Company Number: 2004-BP-05572BP

PATIENT
  Age: 75 Year
  Sex: Male

DRUGS (6)
  1. SPIRIVA [Suspect]
     Indication: CHRONIC OBSTRUCTIVE AIRWAYS DISEASE
     Dosage: 18 MCG (18 MCG, 1 IN 1 D, IH
     Route: 055
     Dates: end: 20040711
  2. ACETYLSALICYLIC ACID SRT [Concomitant]
  3. FOSINOPRIL SODIUM [Concomitant]
  4. ALLOPURINOL [Concomitant]
  5. ZOCOR [Concomitant]
  6. VERAPAMIL [Concomitant]

REACTIONS (2)
  - DRY MOUTH [None]
  - WHEEZING [None]
